FAERS Safety Report 9147572 (Version 5)
Quarter: 2016Q1

REPORT INFORMATION
  Report Type: Spontaneous
  Country: US (occurrence: US)
  Receive Date: 20130307
  Receipt Date: 20160322
  Transmission Date: 20160526
  Serious: Yes (Hospitalization, Other)
  Sender: FDA-Public Use
  Company Number: US-009507513-1303USA002519

PATIENT
  Sex: Female
  Weight: 58.6 kg

DRUGS (4)
  1. ALENDRONATE SODIUM. [Suspect]
     Active Substance: ALENDRONATE SODIUM
     Indication: OSTEOPENIA
     Dosage: UNK, UNKNOWN
     Route: 048
     Dates: start: 20080911, end: 20111215
  2. CORTICOSTEROIDS (UNSPECIFIED) [Concomitant]
     Active Substance: UNSPECIFIED INGREDIENT
     Indication: PRODUCT USED FOR UNKNOWN INDICATION
     Dosage: UNK UNK, UNKNOWN
     Route: 065
     Dates: start: 1993
  3. FOSAMAX [Suspect]
     Active Substance: ALENDRONATE SODIUM
     Indication: OSTEOPENIA
     Dosage: UNK UNK, UNKNOWN
     Route: 048
     Dates: start: 2001, end: 201201
  4. FOSAMAX [Suspect]
     Active Substance: ALENDRONATE SODIUM
     Indication: OSTEOPOROSIS
     Dosage: 70 MG, QW
     Route: 048
     Dates: start: 20031117, end: 20080131

REACTIONS (20)
  - Vitamin D deficiency [Not Recovered/Not Resolved]
  - Hypertension [Not Recovered/Not Resolved]
  - Femur fracture [Recovered/Resolved]
  - Exostosis [Unknown]
  - Aortic stenosis [Unknown]
  - Extrasystoles [Unknown]
  - Oestrogen deficiency [Unknown]
  - Hypercholesterolaemia [Unknown]
  - Obesity [Unknown]
  - Spinal osteoarthritis [Unknown]
  - Anaemia [Unknown]
  - Hyperlipidaemia [Not Recovered/Not Resolved]
  - Insulin-requiring type 2 diabetes mellitus [Unknown]
  - Myalgia [Recovering/Resolving]
  - Blood glucose decreased [Unknown]
  - Aortic valve incompetence [Unknown]
  - Osteoarthritis [Unknown]
  - Femur fracture [Unknown]
  - Hypoglycaemia [Unknown]
  - Adverse event [Unknown]

NARRATIVE: CASE EVENT DATE: 200609
